FAERS Safety Report 9510404 (Version 1)
Quarter: 2013Q3

REPORT INFORMATION
  Report Type: Spontaneous
  Country: US (occurrence: US)
  Receive Date: 20130909
  Receipt Date: 20130909
  Transmission Date: 20140515
  Serious: No
  Sender: FDA-Public Use
  Company Number: US-BRISTOL-MYERS SQUIBB COMPANY-17423518

PATIENT
  Age: 22 Year
  Sex: Female
  Weight: 61.22 kg

DRUGS (1)
  1. ABILIFY [Suspect]
     Indication: BIPOLAR DISORDER
     Dosage: 30 5 MG.TOTAL:7 PILLS
     Route: 048
     Dates: start: 20130121, end: 20130131

REACTIONS (4)
  - Wrong technique in drug usage process [Unknown]
  - Adverse event [Unknown]
  - Somnolence [Unknown]
  - Dizziness [Unknown]
